FAERS Safety Report 10060764 (Version 1)
Quarter: 2014Q2

REPORT INFORMATION
  Report Type: Spontaneous
  Country: AR (occurrence: AR)
  Receive Date: 20140404
  Receipt Date: 20140404
  Transmission Date: 20141212
  Serious: Yes (Other)
  Sender: FDA-Public Use
  Company Number: PHHY2014AR041156

PATIENT
  Sex: Female

DRUGS (1)
  1. GENTEAL [Suspect]
     Indication: DRY EYE
     Dosage: 15 ML, PRN (AT DEMAND)

REACTIONS (3)
  - Cataract [Recovered/Resolved]
  - Memory impairment [Unknown]
  - Anxiety [Unknown]
